FAERS Safety Report 18229306 (Version 4)
Quarter: 2020Q3

REPORT INFORMATION
  Report Type: Spontaneous
  Country: DE (occurrence: DE)
  Receive Date: 20200903
  Receipt Date: 20200929
  Transmission Date: 20201103
  Serious: Yes (Death, Other)
  Sender: FDA-Public Use
  Company Number: NVSC2020DE228924

PATIENT
  Age: 70 Year
  Sex: Female

DRUGS (5)
  1. NIVOLUMAB [Suspect]
     Active Substance: NIVOLUMAB
     Indication: CUTANEOUS T-CELL LYMPHOMA
     Dosage: 2 MG/KG (FIVE INFUSIONS OF NIVOLUMAB )
     Route: 065
  2. NIVOLUMAB [Suspect]
     Active Substance: NIVOLUMAB
     Dosage: UNK (SEVEN INFUSIONS OF NIVOLUMAB)
     Route: 065
  3. INFLIXIMAB [Suspect]
     Active Substance: INFLIXIMAB
     Indication: CUTANEOUS T-CELL LYMPHOMA
     Dosage: 5 MG/KG, ONCE/SINGLE
     Route: 041
  4. INFLIXIMAB [Suspect]
     Active Substance: INFLIXIMAB
     Indication: DIARRHOEA
  5. PREDNISOLONE. [Suspect]
     Active Substance: PREDNISOLONE
     Indication: DIARRHOEA
     Dosage: 1 MG/KG
     Route: 048

REACTIONS (7)
  - Drug effective for unapproved indication [Fatal]
  - Sepsis [Fatal]
  - Cutaneous T-cell lymphoma recurrent [Unknown]
  - Off label use [Fatal]
  - Product use in unapproved indication [Fatal]
  - Disease progression [Fatal]
  - Cutaneous T-cell lymphoma [Fatal]
